FAERS Safety Report 9805436 (Version 1)
Quarter: 2014Q1

REPORT INFORMATION
  Report Type: Spontaneous
  Country: US (occurrence: None)
  Receive Date: 20140108
  Receipt Date: 20140108
  Transmission Date: 20141002
  Serious: Yes (Other)
  Sender: FDA-Public Use
  Company Number: None

PATIENT
  Age: 54 Year
  Sex: Male
  Weight: 83.01 kg

DRUGS (1)
  1. METHYLPHENIDATE ER 18MG [Suspect]
     Dosage: 3 PILLS
     Route: 048
     Dates: start: 20140102, end: 20140107

REACTIONS (3)
  - Drug ineffective [None]
  - Product quality issue [None]
  - Product substitution issue [None]
